FAERS Safety Report 6722594-3 (Version None)
Quarter: 2010Q2

REPORT INFORMATION
  Report Type: 
  Country: None (occurrence: None)
  Receive Date: 20100512
  Receipt Date: 20100429
  Transmission Date: 20101027
  Serious: Yes (Hospitalization, Other)
  Sender: FDA-Public Use
  Company Number: PL-PFIZER INC-2010044564

PATIENT
  Age: 79 Year
  Sex: Female

DRUGS (5)
  1. LYRICA [Suspect]
     Indication: FIBROMYALGIA
     Dosage: 75 MG, 2X/DAY
     Route: 048
     Dates: start: 20100101, end: 20100101
  2. ACETAMINOPHEN AND CODEINE PHOSPHATE [Concomitant]
     Dosage: UNK
     Route: 048
  3. BISOCARD [Concomitant]
     Dosage: 5 MG
     Route: 048
  4. AMLOZEK [Concomitant]
     Dosage: UNK
     Route: 048
  5. OLFEN [Concomitant]
     Dosage: UNK
     Route: 048

REACTIONS (11)
  - AKINESIA [None]
  - AMNESIA [None]
  - ASTHENIA [None]
  - BLOOD FIBRINOGEN INCREASED [None]
  - C-REACTIVE PROTEIN INCREASED [None]
  - DIARRHOEA [None]
  - DYSPHAGIA [None]
  - IRON DEFICIENCY ANAEMIA [None]
  - SEDATION [None]
  - SPEECH DISORDER [None]
  - TONGUE DISORDER [None]
